FAERS Safety Report 6609168-X (Version None)
Quarter: 2010Q1

REPORT INFORMATION
  Report Type: 
  Country: None (occurrence: None)
  Receive Date: 20100224
  Receipt Date: 20100208
  Transmission Date: 20100710
  Serious: Yes (Other)
  Sender: FDA-Public Use
  Company Number: ISPH-2009-0464

PATIENT
  Age: 56 Year
  Sex: Female
  Weight: 56.2 kg

DRUGS (4)
  1. AZASITE [Suspect]
     Indication: DRUG USE FOR UNKNOWN INDICATION
     Dosage: 1 GTT, UNK, OPHTHLAMIC
     Route: 047
     Dates: start: 20091120, end: 20091204
  2. FLAXSEED OIL (LINUM USITATISSIMUM SEED OIL) [Concomitant]
  3. FISH OIL (FISH OIL) [Concomitant]
  4. RESTASIS (CICLOSPORIN) [Concomitant]

REACTIONS (5)
  - EYE IRRITATION [None]
  - EYE PAIN [None]
  - FOREIGN BODY SENSATION IN EYES [None]
  - OCULAR HYPERAEMIA [None]
  - VISION BLURRED [None]
